FAERS Safety Report 4950031-8 (Version None)
Quarter: 2006Q1

REPORT INFORMATION
  Report Type: 
  Country: None (occurrence: None)
  Receive Date: 20060315
  Receipt Date: 20060222
  Transmission Date: 20060701
  Serious: Yes (Other)
  Sender: FDA-Public Use
  Company Number: DE200602004789

PATIENT
  Sex: Female

DRUGS (9)
  1. CYMBALTA [Suspect]
     Indication: DEPRESSION
     Dosage: SEE IMAGE
     Route: 048
     Dates: start: 20051208
  2. CYMBALTA [Suspect]
     Indication: DEPRESSION
     Dosage: SEE IMAGE
     Route: 048
     Dates: start: 20060103
  3. MELPERON (MELPERONE HYDROCHLORIDE) [Concomitant]
  4. LEVOTHYROXINE SODIUM [Concomitant]
  5. PANTOPRAZOLE SODIUM [Concomitant]
  6. VENOSTASIN (HORSE CHESTNUT EXTRACT, THIAMINE HYDROCHLORIDE) [Concomitant]
  7. ENALAPRIL MALEATE [Concomitant]
  8. MAGNESIUM VERLA DRAGEES (MAGNESIUM CITRATE, MAGNESIUM GLUTAMATE, MAGNE [Concomitant]
  9. NOVALGIN (METAMIZOLE SODIUM MONOHYDRATE) [Concomitant]

REACTIONS (9)
  - AGITATION [None]
  - BLOOD PRESSURE INCREASED [None]
  - DELIRIUM [None]
  - DISORIENTATION [None]
  - DRUG INTERACTION [None]
  - EUPHORIC MOOD [None]
  - HALLUCINATION [None]
  - MANIA [None]
  - TACHYCARDIA [None]
